FAERS Safety Report 7060902-7 (Version None)
Quarter: 2010Q4

REPORT INFORMATION
  Report Type: 
  Country: None (occurrence: None)
  Receive Date: 20101025
  Receipt Date: 20101011
  Transmission Date: 20110411
  Serious: Yes (Other)
  Sender: FDA-Public Use
  Company Number: PHHY2010ZA67999

PATIENT
  Sex: Female
  Weight: 47 kg

DRUGS (1)
  1. GLEEVEC [Suspect]
     Indication: CHRONIC MYELOID LEUKAEMIA
     Dosage: 300 MG, UNK
     Dates: start: 20071218

REACTIONS (3)
  - BODY HEIGHT DECREASED [None]
  - GROWTH RETARDATION [None]
  - WEIGHT DECREASED [None]
